FAERS Safety Report 10378747 (Version 2)
Quarter: 2014Q3

REPORT INFORMATION
  Report Type: Spontaneous
  Country: US (occurrence: US)
  Receive Date: 20140812
  Receipt Date: 20140905
  Transmission Date: 20150326
  Serious: No
  Sender: FDA-Public Use
  Company Number: US-BAYER-2014-120158

PATIENT
  Sex: Female

DRUGS (1)
  1. ESTRADIOL HEMIHYDRATE (PATCH) [Suspect]
     Active Substance: ESTRADIOL HEMIHYDRATE
     Indication: MENOPAUSE
     Dosage: 0.075 MG, QD
     Route: 062
     Dates: start: 201405, end: 201406

REACTIONS (5)
  - Drug ineffective [Recovered/Resolved]
  - Affect lability [Recovered/Resolved]
  - Product physical issue [None]
  - Product size issue [None]
  - Product adhesion issue [None]

NARRATIVE: CASE EVENT DATE: 201405
